FAERS Safety Report 10440879 (Version 1)
Quarter: 2014Q3

REPORT INFORMATION
  Report Type: Report from Study
  Country: JP (occurrence: JP)
  Receive Date: 20140909
  Receipt Date: 20140909
  Transmission Date: 20150326
  Serious: Yes (Hospitalization)
  Sender: FDA-Public Use
  Company Number: JP-EISAI-201404102

PATIENT
  Age: 41 Year
  Sex: Male
  Weight: 121 kg

DRUGS (6)
  1. LUNESTA [Suspect]
     Active Substance: ESZOPICLONE
     Indication: INSOMNIA RELATED TO ANOTHER MENTAL CONDITION
     Dates: start: 20140523
  2. MUCOSOLVAN [Concomitant]
     Active Substance: AMBROXOL\CLENBUTEROL
     Indication: TONSILLITIS
     Dates: start: 20140523, end: 20140530
  3. SAWACILLIN [Concomitant]
     Active Substance: AMOXICILLIN
     Indication: TONSILLITIS
     Dates: start: 20140523, end: 20140526
  4. RISPERDAL [Concomitant]
     Active Substance: RISPERIDONE
     Indication: SCHIZOPHRENIA
     Dates: start: 20140523, end: 20140526
  5. TRANSAMIN [Concomitant]
     Active Substance: TRANEXAMIC ACID
     Indication: TONSILLITIS
     Dates: start: 20140523, end: 20140530
  6. SAWACILLIN [Concomitant]
     Active Substance: AMOXICILLIN
     Indication: TONSILLITIS
     Dates: start: 20140527, end: 20140530

REACTIONS (1)
  - Schizophrenia [Recovering/Resolving]

NARRATIVE: CASE EVENT DATE: 20140527
